FAERS Safety Report 14977589 (Version 1)
Quarter: 2018Q3

REPORT INFORMATION
  Report Type: Spontaneous
  Country: US (occurrence: US)
  Receive Date: 20180606
  Receipt Date: 20180606
  Transmission Date: 20181010
  Serious: No
  Sender: FDA-Public Use
  Company Number: US-TEVA-786839ACC

PATIENT
  Sex: Female

DRUGS (1)
  1. KETOROLAC TROMETHAMINE TABLETS [Suspect]
     Active Substance: KETOROLAC TROMETHAMINE
     Indication: SCIATICA
     Dates: start: 20170706

REACTIONS (3)
  - Urticaria [Not Recovered/Not Resolved]
  - Headache [Not Recovered/Not Resolved]
  - Stress [None]

NARRATIVE: CASE EVENT DATE: 20170706
